FAERS Safety Report 8396523-3 (Version None)
Quarter: 2012Q2

REPORT INFORMATION
  Report Type: 
  Country: None (occurrence: None)
  Receive Date: 20120530
  Receipt Date: 20120521
  Transmission Date: 20120825
  Serious: Yes (Hospitalization, Other)
  Sender: FDA-Public Use
  Company Number: US-JNJFOC-20120211254

PATIENT
  Sex: Male

DRUGS (2)
  1. FLUOXETINE [Concomitant]
     Indication: DEPRESSION
  2. LEVAQUIN [Suspect]
     Indication: CHRONIC SINUSITIS
     Route: 048

REACTIONS (3)
  - ROTATOR CUFF SYNDROME [None]
  - ARTHRALGIA [None]
  - TENDON RUPTURE [None]
